FAERS Safety Report 26164436 (Version 1)
Quarter: 2025Q4

REPORT INFORMATION
  Report Type: Spontaneous
  Country: US (occurrence: US)
  Receive Date: 20251216
  Receipt Date: 20251216
  Transmission Date: 20260118
  Serious: No
  Sender: SANOFI AVENTIS
  Company Number: US-SA-2025SA373531

PATIENT
  Age: 9 Year
  Sex: Male
  Weight: 27.27 kg

DRUGS (11)
  1. CEREZYME [Suspect]
     Active Substance: IMIGLUCERASE
     Indication: Gaucher^s disease
     Dosage: 1600 U, QOW
     Route: 042
  2. SODIUM CHLORIDE [Concomitant]
     Active Substance: SODIUM CHLORIDE
  3. EPINEPHRINE [Concomitant]
     Active Substance: EPINEPHRINE
  4. SODIUM CHLORIDE [Concomitant]
     Active Substance: SODIUM CHLORIDE
  5. HEPARIN [Concomitant]
     Active Substance: HEPARIN SODIUM
  6. CHILDRENS TYLENOL [Concomitant]
     Active Substance: ACETAMINOPHEN
  7. LIDOCAINE [Concomitant]
     Active Substance: LIDOCAINE
  8. CETIRIZINE HCL [Concomitant]
     Active Substance: CETIRIZINE HYDROCHLORIDE
  9. DIPHENHYDRAMINE HYDROCHLORIDE [Concomitant]
     Active Substance: DIPHENHYDRAMINE HYDROCHLORIDE
  10. MINERALS\VITAMINS [Concomitant]
     Active Substance: MINERALS\VITAMINS
  11. STERILE WATER [Concomitant]
     Active Substance: WATER

REACTIONS (7)
  - Hypersomnia [Recovering/Resolving]
  - Decreased appetite [Recovering/Resolving]
  - Tremor [Recovering/Resolving]
  - Chills [Recovering/Resolving]
  - Fatigue [Recovering/Resolving]
  - Vomiting [Recovering/Resolving]
  - Dizziness [Recovering/Resolving]

NARRATIVE: CASE EVENT DATE: 20251208
